FAERS Safety Report 6072530-0 (Version None)
Quarter: 2009Q1

REPORT INFORMATION
  Report Type: 
  Country: None (occurrence: None)
  Receive Date: 20090210
  Receipt Date: 20090129
  Transmission Date: 20090719
  Serious: Yes (Hospitalization, Other)
  Sender: FDA-Public Use
  Company Number: US-ROCHE-552266

PATIENT
  Sex: Male
  Weight: 117.9 kg

DRUGS (1)
  1. ACCUTANE [Suspect]
     Indication: ACNE
     Route: 065
     Dates: start: 19871201, end: 19880601

REACTIONS (8)
  - ABDOMINAL SEPSIS [None]
  - ANAEMIA [None]
  - ANXIETY [None]
  - CHOLECYSTITIS [None]
  - COLITIS ULCERATIVE [None]
  - DEPRESSION [None]
  - INFLAMMATORY BOWEL DISEASE [None]
  - OESOPHAGEAL ULCER [None]
